FAERS Safety Report 4602011-X (Version None)
Quarter: 2005Q1

REPORT INFORMATION
  Report Type: 
  Country: None (occurrence: None)
  Receive Date: 20050201
  Receipt Date: 20040312
  Transmission Date: 20050727
  Serious: Yes (Life-Threatening, Hospitalization, Other)
  Sender: FDA-Public Use
  Company Number: 200415444BWH

PATIENT
  Age: 79 Year
  Sex: Female
  Weight: 50.8029 kg

DRUGS (5)
  1. AVELOX [Suspect]
     Indication: BRONCHITIS
     Dosage: 400 MG, TOTAL DAILY, ORAL
     Route: 048
     Dates: start: 20040225
  2. AVELOX [Suspect]
     Indication: PNEUMONIA
     Dosage: 400 MG, TOTAL DAILY, ORAL
     Route: 048
     Dates: start: 20040225
  3. PREDISONE [Concomitant]
  4. COMBIVENT [Concomitant]
  5. AZMACORT [Concomitant]

REACTIONS (4)
  - ANAPHYLACTIC REACTION [None]
  - FEELING ABNORMAL [None]
  - RASH ERYTHEMATOUS [None]
  - URTICARIA [None]
